FAERS Safety Report 10545043 (Version 4)
Quarter: 2018Q3

REPORT INFORMATION
  Report Type: Spontaneous
  Country: US (occurrence: US)
  Receive Date: 20141027
  Receipt Date: 20180920
  Transmission Date: 20181010
  Serious: Yes (Hospitalization)
  Sender: FDA-Public Use
  Company Number: US-BAYER-2014-155832

PATIENT
  Age: 32 Year
  Sex: Female
  Weight: 77 kg

DRUGS (5)
  1. METHOTREXATE. [Concomitant]
     Active Substance: METHOTREXATE
  2. COLACE [Concomitant]
     Active Substance: DOCUSATE SODIUM
  3. ZOFRAN [Concomitant]
     Active Substance: ONDANSETRON HYDROCHLORIDE
  4. PERCOCET [Concomitant]
     Active Substance: ACETAMINOPHEN\OXYCODONE HYDROCHLORIDE
  5. MIRENA [Suspect]
     Active Substance: LEVONORGESTREL
     Indication: CONTRACEPTION
     Dosage: 20 MCG/24HR, CONT
     Route: 015
     Dates: start: 20111004, end: 20130325

REACTIONS (6)
  - Pain [None]
  - Emotional distress [Not Recovered/Not Resolved]
  - Ectopic pregnancy with contraceptive device [Recovered/Resolved]
  - Uterine perforation [None]
  - Injury [None]
  - Drug ineffective [None]

NARRATIVE: CASE EVENT DATE: 2013
